FAERS Safety Report 6174888-0 (Version None)
Quarter: 2009Q2

REPORT INFORMATION
  Report Type: 
  Country: None (occurrence: None)
  Receive Date: 20090430
  Receipt Date: 20081215
  Transmission Date: 20091009
  Serious: No
  Sender: FDA-Public Use
  Company Number: US-ASTRAZENECA-2008UW27947

PATIENT
  Age: 57 Year
  Sex: Male
  Weight: 84.4 kg

DRUGS (1)
  1. NEXIUM [Suspect]
     Indication: REFLUX OESOPHAGITIS
     Route: 048
     Dates: start: 20081201

REACTIONS (2)
  - DRUG ADMINISTRATION ERROR [None]
  - DYSPEPSIA [None]
